FAERS Safety Report 6697413-4 (Version None)
Quarter: 2010Q2

REPORT INFORMATION
  Report Type: 
  Country: None (occurrence: None)
  Receive Date: 20100426
  Receipt Date: 20100211
  Transmission Date: 20101027
  Serious: Yes (Other)
  Sender: FDA-Public Use
  Company Number: CHPA2010US03442

PATIENT
  Age: 26 Year
  Sex: Male

DRUGS (2)
  1. EXCEDRIN (MIGRAINE) [Suspect]
     Indication: HEADACHE
     Dosage: UNK, 2-3 TIMES A WEEK
  2. EXCEDRIN (MIGRAINE) [Suspect]
     Dosage: UNK, QD

REACTIONS (4)
  - DRUG DEPENDENCE [None]
  - GASTRIC HAEMORRHAGE [None]
  - GASTRITIS EROSIVE [None]
  - REBOUND EFFECT [None]
